FAERS Safety Report 9984016 (Version 2)
Quarter: 2014Q1

REPORT INFORMATION
  Report Type: Report from Study
  Country: US (occurrence: US)
  Receive Date: 20140307
  Receipt Date: 20140307
  Transmission Date: 20141002
  Serious: Yes (Hospitalization)
  Sender: FDA-Public Use
  Company Number: US-ABBVIE-13P-163-1151150-00

PATIENT
  Sex: Female
  Weight: 90.8 kg

DRUGS (8)
  1. HUMIRA [Suspect]
     Indication: RHEUMATOID ARTHRITIS
     Route: 058
     Dates: start: 20091007, end: 20130911
  2. HUMIRA [Suspect]
     Indication: ANKYLOSING SPONDYLITIS
  3. HUMIRA [Suspect]
     Indication: SPONDYLOARTHROPATHY
  4. RANTIDINE [Concomitant]
     Indication: ABDOMINAL PAIN UPPER
  5. CLARITIN [Concomitant]
     Indication: HYPERSENSITIVITY
  6. FOLIC ACID [Concomitant]
     Indication: VITAMIN SUPPLEMENTATION
     Dosage: WITH METHOTREXATE
  7. SIMVASTATIN [Concomitant]
     Indication: BLOOD CHOLESTEROL INCREASED
  8. UNKNOWN SLEEPING PILL [Concomitant]
     Indication: INSOMNIA

REACTIONS (5)
  - Intraductal proliferative breast lesion [Recovered/Resolved]
  - Bronchopneumonia [Recovered/Resolved]
  - Cough [Recovered/Resolved]
  - Drug effect decreased [Unknown]
  - Nausea [Unknown]
